FAERS Safety Report 24094219 (Version 2)
Quarter: 2024Q3

REPORT INFORMATION
  Report Type: Report from Study
  Country: US (occurrence: US)
  Receive Date: 20240716
  Receipt Date: 20240925
  Transmission Date: 20241017
  Serious: No
  Sender: ROCHE
  Company Number: US-ROCHE-10000022434

PATIENT
  Age: 27 Year
  Sex: Female
  Weight: 124.28 kg

DRUGS (7)
  1. OCREVUS [Suspect]
     Active Substance: OCRELIZUMAB
     Indication: Relapsing multiple sclerosis
     Dosage: DATE OF TREATMENT: 18/AUG/2022, 01/SEP/2022, ANTICIPATED DATE OF TREATMENT: 02/MAR/2023, 01/SEP/2022
     Route: 042
     Dates: start: 202208, end: 20240607
  2. VITAMIN B3 [Concomitant]
     Active Substance: NIACIN
  3. ASPIRIN [Concomitant]
     Active Substance: ASPIRIN
  4. ERGOCALCIFEROL [Concomitant]
     Active Substance: ERGOCALCIFEROL
  5. VITAMIN B12 [Concomitant]
     Active Substance: CYANOCOBALAMIN
  6. ALBUTEROL [Concomitant]
     Active Substance: ALBUTEROL
  7. BENADRYL [Concomitant]
     Active Substance: DIPHENHYDRAMINE HYDROCHLORIDE

REACTIONS (9)
  - Hypoaesthesia [Recovered/Resolved]
  - Poor peripheral circulation [Recovered/Resolved]
  - Tuberculosis [Not Recovered/Not Resolved]
  - Ankle fracture [Not Recovered/Not Resolved]
  - Throat tightness [Recovered/Resolved]
  - Dyspnoea [Recovered/Resolved]
  - Maternal exposure before pregnancy [Unknown]
  - Maternal exposure during pregnancy [Unknown]
  - Drug hypersensitivity [Recovered/Resolved]

NARRATIVE: CASE EVENT DATE: 20231001
